FAERS Safety Report 18554696 (Version 11)
Quarter: 2021Q3

REPORT INFORMATION
  Report Type: Report from Study
  Country: US (occurrence: US)
  Receive Date: 20201127
  Receipt Date: 20210909
  Transmission Date: 20211014
  Serious: Yes (Death, Other)
  Sender: FDA-Public Use
  Company Number: NVSC2020US314040

PATIENT
  Sex: Male

DRUGS (3)
  1. BEOVU [Suspect]
     Active Substance: BROLUCIZUMAB-DBLL
     Indication: NEOVASCULAR AGE-RELATED MACULAR DEGENERATION
     Dosage: UNK (BOTH EYES)
     Route: 047
  2. BEOVU [Suspect]
     Active Substance: BROLUCIZUMAB-DBLL
     Dosage: UNK
     Route: 047
  3. BEOVU [Suspect]
     Active Substance: BROLUCIZUMAB-DBLL
     Dosage: UNK (BOTH EYES)
     Route: 047

REACTIONS (6)
  - Condition aggravated [Unknown]
  - Neovascular age-related macular degeneration [Unknown]
  - Eye haemorrhage [Recovered/Resolved]
  - Death [Fatal]
  - Visual impairment [Not Recovered/Not Resolved]
  - Blindness [Unknown]
